FAERS Safety Report 5610272-3 (Version None)
Quarter: 2008Q1

REPORT INFORMATION
  Report Type: 
  Country: None (occurrence: None)
  Receive Date: 20080128
  Receipt Date: 20080114
  Transmission Date: 20080703
  Serious: Yes (Hospitalization)
  Sender: FDA-Public Use
  Company Number: 2008S1000024

PATIENT
  Age: 33 Year
  Sex: Female

DRUGS (3)
  1. CUBICIN [Suspect]
     Indication: ENDOCARDITIS STAPHYLOCOCCAL
     Dosage: 6 MG/KG; Q24H; IV
     Route: 042
     Dates: start: 20071130, end: 20071226
  2. CEFAZOLIN [Concomitant]
  3. VANCOMYCIN [Concomitant]

REACTIONS (3)
  - LABORATORY TEST ABNORMAL [None]
  - PULMONARY EMBOLISM [None]
  - SEPTIC EMBOLUS [None]
